FAERS Safety Report 15790478 (Version 1)
Quarter: 2019Q1

REPORT INFORMATION
  Report Type: Spontaneous
  Country: US (occurrence: US)
  Receive Date: 20190104
  Receipt Date: 20190104
  Transmission Date: 20190417
  Serious: Yes (Life-Threatening, Hospitalization)
  Sender: FDA-Public Use
  Company Number: None

PATIENT
  Age: 51 Year
  Sex: Female
  Weight: 74.25 kg

DRUGS (1)
  1. LORSARTAN [Suspect]
     Active Substance: LOSARTAN
     Route: 048
     Dates: start: 20160102

REACTIONS (1)
  - Renal failure [None]

NARRATIVE: CASE EVENT DATE: 19661001
